FAERS Safety Report 6706341-7 (Version None)
Quarter: 2010Q2

REPORT INFORMATION
  Report Type: 
  Country: None (occurrence: None)
  Receive Date: 20100503
  Receipt Date: 20100419
  Transmission Date: 20101027
  Serious: Yes (Disabling, Other)
  Sender: FDA-Public Use
  Company Number: PHHY2010FR24544

PATIENT
  Age: 68 Year
  Sex: Male

DRUGS (1)
  1. TASIGNA [Suspect]
     Dosage: 1 DF, QID
     Dates: start: 20090101

REACTIONS (6)
  - FALL [None]
  - HYPOPITUITARISM [None]
  - MUSCLE SPASMS [None]
  - MYOPATHY [None]
  - PANCYTOPENIA [None]
  - SECONDARY HYPOTHYROIDISM [None]
